FAERS Safety Report 4874479-5 (Version None)
Quarter: 2006Q1

REPORT INFORMATION
  Report Type: 
  Country: None (occurrence: None)
  Receive Date: 20060106
  Receipt Date: 20051229
  Transmission Date: 20060701
  Serious: Yes (Death)
  Sender: FDA-Public Use
  Company Number: US-ROCHE-430323

PATIENT
  Age: 67 Year
  Sex: Male

DRUGS (1)
  1. VESANOID [Suspect]
     Indication: UNEVALUABLE EVENT
     Route: 065
     Dates: start: 20030823

REACTIONS (1)
  - BRAIN NEOPLASM MALIGNANT [None]
